FAERS Safety Report 15236568 (Version 1)
Quarter: 2018Q3

REPORT INFORMATION
  Report Type: Spontaneous
  Country: JP (occurrence: JP)
  Receive Date: 20180803
  Receipt Date: 20180803
  Transmission Date: 20181010
  Serious: Yes (Disabling, Other)
  Sender: FDA-Public Use
  Company Number: JP-TEVA-2018-JP-002405J

PATIENT
  Age: 57 Year
  Sex: Male

DRUGS (2)
  1. CYTARABINE INTRAVENOUS INFUSION 1G TEVA [Suspect]
     Active Substance: CYTARABINE
     Indication: ACUTE LEUKAEMIA
     Dosage: 3200 MILLIGRAM DAILY;
     Route: 042
  2. CYTARABINE INTRAVENOUS INFUSION 1G TEVA [Suspect]
     Active Substance: CYTARABINE
     Indication: CHEMOTHERAPY

REACTIONS (2)
  - Product substitution issue [Unknown]
  - Protein urine present [Recovering/Resolving]
